FAERS Safety Report 10592974 (Version 1)
Quarter: 2014Q4

REPORT INFORMATION
  Report Type: Spontaneous
  Country: US (occurrence: None)
  Receive Date: 20141118
  Receipt Date: 20141118
  Transmission Date: 20150529
  Serious: No
  Sender: FDA-Public Use
  Company Number: None

PATIENT
  Age: 45 Year
  Sex: Female
  Weight: 61.24 kg

DRUGS (1)
  1. AMPHETAMINE SALTS [Suspect]
     Active Substance: AMPHETAMINE ASPARTATE\AMPHETAMINE SULFATE\DEXTROAMPHETAMINE SACCHARATE\DEXTROAMPHETAMINE SULFATE
     Indication: ATTENTION DEFICIT/HYPERACTIVITY DISORDER
     Dosage: 2 1/2 TABLETS TWICE DAILY ORALLY
     Route: 048

REACTIONS (7)
  - Feeling abnormal [None]
  - Product substitution issue [None]
  - Drug ineffective [None]
  - Feeling jittery [None]
  - Product quality issue [None]
  - Disturbance in attention [None]
  - Migraine [None]

NARRATIVE: CASE EVENT DATE: 20141117
